FAERS Safety Report 15811181 (Version 1)
Quarter: 2019Q1

REPORT INFORMATION
  Report Type: Spontaneous
  Country: DK (occurrence: DK)
  Receive Date: 20190111
  Receipt Date: 20190111
  Transmission Date: 20190417
  Serious: Yes (Life-Threatening, Hospitalization)
  Sender: FDA-Public Use
  Company Number: DK-TEVA-2019-DK-997168

PATIENT
  Age: 84 Year
  Sex: Female

DRUGS (9)
  1. FORMO EASYHALER [Concomitant]
     Indication: CHRONIC OBSTRUCTIVE PULMONARY DISEASE
     Dosage: 2 DOSAGE FORMS DAILY; STRENGTH: 12 MICROGRAMS / DOSE
     Route: 055
     Dates: start: 20180216
  2. OXYCODONE [Suspect]
     Active Substance: OXYCODONE
     Indication: PROCEDURAL PAIN
     Route: 048
     Dates: start: 20181116, end: 201811
  3. PANODIL [Concomitant]
     Active Substance: ACETAMINOPHEN
     Indication: PAIN
     Dosage: 4000 MILLIGRAM DAILY;
     Route: 048
     Dates: start: 20181115
  4. ALPHAGAN P [Concomitant]
     Active Substance: BRIMONIDINE TARTRATE
     Indication: GLAUCOMA
     Dosage: 2 DOSAGE FORMS DAILY;
     Route: 050
     Dates: start: 20180103
  5. SERENASE [Concomitant]
     Indication: PRODUCT USED FOR UNKNOWN INDICATION
     Dosage: DOSAGE: UNKNOWN. STRENGTH: UNKNOWN.
  6. VENTOLIN DISKOS [Concomitant]
     Indication: BRONCHOSPASM
     Route: 055
     Dates: start: 20180215
  7. DUOTRAV [Concomitant]
     Active Substance: TIMOLOL MALEATE\TRAVOPROST
     Indication: GLAUCOMA
     Dosage: 1 DOSAGE FORMS DAILY;
     Route: 050
  8. AZOPT [Concomitant]
     Active Substance: BRINZOLAMIDE
     Indication: GLAUCOMA
     Dosage: 2 DOSAGE FORMS DAILY;
     Route: 050
     Dates: start: 20180904
  9. MORFINA//MORPHINE [Concomitant]
     Active Substance: MORPHINE SULFATE
     Indication: PAIN
     Dosage: DOSAGE: UNKNOWN. STRENGTH: UNKNOWN.
     Route: 042
     Dates: start: 201811

REACTIONS (1)
  - Respiratory acidosis [Recovered/Resolved]

NARRATIVE: CASE EVENT DATE: 20181119
